FAERS Safety Report 5106300-4 (Version None)
Quarter: 2006Q3

REPORT INFORMATION
  Report Type: 
  Country: None (occurrence: None)
  Receive Date: 20060918
  Receipt Date: 20060904
  Transmission Date: 20061208
  Serious: Yes (Death, Hospitalization)
  Sender: FDA-Public Use
  Company Number: HQWYE330105SEP06

PATIENT
  Sex: Female

DRUGS (3)
  1. ENBREL [Suspect]
     Indication: RHEUMATOID ARTHRITIS
     Route: 058
     Dates: start: 20060703, end: 20060730
  2. METHOTREXATE [Suspect]
     Dosage: 2.5 MG, TAB
     Route: 048
     Dates: start: 20060513, end: 20060730
  3. PREDNISOLONE [Concomitant]
     Route: 048
     Dates: start: 20060501, end: 20060701

REACTIONS (1)
  - PNEUMOCYSTIS JIROVECI PNEUMONIA [None]
